FAERS Safety Report 6983462-5 (Version None)
Quarter: 2010Q3

REPORT INFORMATION
  Report Type: 
  Country: None (occurrence: None)
  Receive Date: 20100914
  Receipt Date: 20080616
  Transmission Date: 20110219
  Serious: No
  Sender: FDA-Public Use
  Company Number: US-WYE-H04561708

PATIENT
  Age: 92 Year
  Sex: Female
  Weight: 61.29 kg

DRUGS (7)
  1. ADVIL LIQUI-GELS [Suspect]
     Indication: BACK PAIN
     Dosage: 2 TABLET 1-2 TIMES DAILY
     Route: 048
     Dates: start: 20080601, end: 20080614
  2. HYDROCHLOROTHIAZIDE [Concomitant]
  3. METHAZOLAMIDE [Concomitant]
  4. TOPROL-XL [Concomitant]
  5. ASPIRIN [Concomitant]
  6. ZESTRIL [Concomitant]
  7. NORVASC [Concomitant]

REACTIONS (1)
  - CHEST DISCOMFORT [None]
